FAERS Safety Report 22098693 (Version 1)
Quarter: 2023Q1

REPORT INFORMATION
  Report Type: Spontaneous
  Country: US (occurrence: US)
  Receive Date: 20230315
  Receipt Date: 20230315
  Transmission Date: 20230418
  Serious: No
  Sender: FDA-Public Use
  Company Number: US-TEVA-2023-US-2863556

PATIENT
  Age: 78 Year
  Sex: Female
  Weight: 104.33 kg

DRUGS (1)
  1. ESTRADIOL [Suspect]
     Active Substance: ESTRADIOL
     Indication: Product used for unknown indication
     Route: 065

REACTIONS (4)
  - Night sweats [Unknown]
  - Hot flush [Unknown]
  - Weight increased [Unknown]
  - Drug ineffective [Unknown]
